FAERS Safety Report 25489994 (Version 1)
Quarter: 2025Q2

REPORT INFORMATION
  Report Type: Spontaneous
  Country: US (occurrence: US)
  Receive Date: 20250628
  Receipt Date: 20250628
  Transmission Date: 20250716
  Serious: No
  Sender: SANOFI AVENTIS
  Company Number: US-SA-2025SA180699

PATIENT
  Age: 52 Year
  Sex: Female
  Weight: 58.05 kg

DRUGS (5)
  1. DUPIXENT [Suspect]
     Active Substance: DUPILUMAB
     Dosage: 300 MG, QOW
     Route: 058
     Dates: start: 2018
  2. HUMIRA [Concomitant]
     Active Substance: ADALIMUMAB
  3. LEVOMEFOLIC ACID [Concomitant]
     Active Substance: LEVOMEFOLIC ACID
  4. SULFASALAZINE [Concomitant]
     Active Substance: SULFASALAZINE
  5. PREMARIN [Concomitant]
     Active Substance: ESTROGENS, CONJUGATED

REACTIONS (3)
  - Weight decreased [Unknown]
  - Injection site urticaria [Unknown]
  - Injection site pain [Unknown]
